FAERS Safety Report 9330977 (Version 1)
Quarter: 2013Q2

REPORT INFORMATION
  Report Type: Spontaneous
  Country: IN (occurrence: IN)
  Receive Date: 20130605
  Receipt Date: 20130605
  Transmission Date: 20140414
  Serious: Yes (Death)
  Sender: FDA-Public Use
  Company Number: IN-ASTELLAS-2013JP006357

PATIENT
  Sex: Male

DRUGS (2)
  1. PROGRAF [Suspect]
     Indication: RENAL TRANSPLANT
     Dosage: 2 MG, BID
     Route: 048
     Dates: start: 201110
  2. CELLCEPT /01275102/ [Suspect]
     Dosage: 500 MG, BID
     Route: 048
     Dates: start: 201110

REACTIONS (1)
  - Venous thrombosis [Fatal]
